APPROVED DRUG PRODUCT: WAINUA (AUTOINJECTOR)
Active Ingredient: EPLONTERSEN SODIUM
Strength: EQ 45MG BASE/0.8ML (EQ 45MG BASE/0.8ML)
Dosage Form/Route: SOLUTION;SUBCUTANEOUS
Application: N217388 | Product #001
Applicant: ASTRAZENECA AB
Approved: Dec 21, 2023 | RLD: Yes | RS: Yes | Type: RX

PATENTS:
Patent 10683499 | Expires: Aug 25, 2034
Patent 9127276 | Expires: May 1, 2034
Patent 9181549 | Expires: May 1, 2034
Patent 8101743 | Expires: Apr 1, 2026

EXCLUSIVITY:
Code: NCE | Date: Dec 21, 2028
Code: ODE-461 | Date: Dec 21, 2030